FAERS Safety Report 8551908-7 (Version None)
Quarter: 2012Q3

REPORT INFORMATION
  Report Type: 
  Country: None (occurrence: None)
  Receive Date: 20120730
  Receipt Date: 20120726
  Transmission Date: 20120928
  Serious: Yes (Death)
  Sender: FDA-Public Use
  Company Number: US-B.I. PHARMACEUTICALS,INC./RIDGEFIELD-2012-BP-16136BP

PATIENT
  Age: 88 Year
  Sex: Male

DRUGS (17)
  1. FUROSEMIDE [Concomitant]
     Indication: OEDEMA PERIPHERAL
  2. PRADAXA [Suspect]
     Indication: ATRIAL FIBRILLATION
     Dosage: 150 MG
     Route: 048
     Dates: start: 20110901
  3. ARICEPT [Concomitant]
     Indication: DEMENTIA
     Dosage: 10 MG
  4. BACTRIM [Concomitant]
     Indication: PROPHYLAXIS URINARY TRACT INFECTION
  5. NAMENDA [Concomitant]
     Indication: DEMENTIA
     Dosage: 20 MG
  6. KETOCONAZOLE [Concomitant]
     Indication: ONYCHOMYCOSIS
  7. SINEMET [Concomitant]
     Indication: PARKINSON'S DISEASE
  8. DIGOXIN [Concomitant]
     Indication: HEART RATE ABNORMAL
  9. PROSCAR [Concomitant]
     Indication: BENIGN PROSTATIC HYPERPLASIA
  10. HYTRIN [Concomitant]
     Indication: BENIGN PROSTATIC HYPERPLASIA
     Dosage: 2 MG
  11. METOPROLOL TARTRATE [Concomitant]
     Indication: HYPERTENSION
     Dosage: 12.5 MG
  12. NEURONTIN [Concomitant]
     Indication: NEUROPATHY PERIPHERAL
  13. IRON [Concomitant]
     Indication: ANAEMIA
     Dosage: 325 MG
  14. TEMAZEPAM [Concomitant]
     Indication: INSOMNIA
     Dosage: 30 MG
  15. METOPROLOL TARTRATE [Concomitant]
     Indication: HEART RATE ABNORMAL
  16. FUROSEMIDE [Concomitant]
     Indication: HYPERTENSION
     Dosage: 10 MG
  17. AMBIEN [Concomitant]

REACTIONS (1)
  - EMBOLIC STROKE [None]
